FAERS Safety Report 24921767 (Version 1)
Quarter: 2025Q1

REPORT INFORMATION
  Report Type: Spontaneous
  Country: US (occurrence: US)
  Receive Date: 20250204
  Receipt Date: 20250204
  Transmission Date: 20250409
  Serious: Yes (Other)
  Sender: NOVARTIS
  Company Number: US-002147023-NVSC2025US017996

PATIENT
  Age: 25 Year
  Sex: Male

DRUGS (2)
  1. KYMRIAH [Suspect]
     Active Substance: TISAGENLECLEUCEL
     Indication: Haematological neoplasm
     Route: 042
     Dates: start: 202010, end: 202010
  2. KYMRIAH [Suspect]
     Active Substance: TISAGENLECLEUCEL
     Route: 042
     Dates: start: 202404, end: 202404

REACTIONS (3)
  - Haematological neoplasm [Unknown]
  - Hepatic fibrosis [Unknown]
  - B-cell aplasia [Not Recovered/Not Resolved]

NARRATIVE: CASE EVENT DATE: 20231201
